FAERS Safety Report 9239431 (Version 2)
Quarter: 2013Q4

REPORT INFORMATION
  Report Type: Spontaneous
  Country: US (occurrence: US)
  Receive Date: 20130418
  Receipt Date: 20131129
  Transmission Date: 20140711
  Serious: No
  Sender: FDA-Public Use
  Company Number: US-PFIZER INC-2013118541

PATIENT
  Age: 52 Year
  Sex: Male

DRUGS (2)
  1. OXYCODONE HYDROCHLORIDE [Suspect]
     Indication: PAIN
     Dosage: 15MG (1 TABLET) FOUR TIMES DAILY AS NEEDED
     Route: 048
  2. OXYCODONE HYDROCHLORIDE [Suspect]
     Dosage: 15MG (1 TABLET) 5 TIMES A DAY FOR 30 DAYS

REACTIONS (4)
  - Visual acuity reduced [Unknown]
  - Blood testosterone decreased [Unknown]
  - Constipation [Unknown]
  - Drug ineffective [Unknown]
